FAERS Safety Report 21517915 (Version 5)
Quarter: 2022Q4

REPORT INFORMATION
  Report Type: Spontaneous
  Country: JP (occurrence: JP)
  Receive Date: 20221028
  Receipt Date: 20221229
  Transmission Date: 20230112
  Serious: Yes (Hospitalization, Disabling, Other)
  Sender: FDA-Public Use
  Company Number: JP-MSD-M2022-28713

PATIENT
  Age: 75 Year
  Sex: Male

DRUGS (8)
  1. KEYTRUDA [Suspect]
     Active Substance: PEMBROLIZUMAB
     Indication: Lung squamous cell carcinoma stage IV
     Dosage: 200 MILLIGRAM, Q3W
     Route: 041
     Dates: start: 20220629, end: 20220629
  2. KEYTRUDA [Suspect]
     Active Substance: PEMBROLIZUMAB
     Dosage: 200 MILLIGRAM, Q3W
     Route: 041
     Dates: start: 2022, end: 20220913
  3. CARBOPLATIN [Concomitant]
     Active Substance: CARBOPLATIN
     Dosage: AUC4, Q3W
     Route: 041
     Dates: start: 20220629, end: 20220629
  4. CARBOPLATIN [Concomitant]
     Active Substance: CARBOPLATIN
     Dosage: AUC4, Q3W
     Route: 041
     Dates: start: 20220810, end: 20220810
  5. ABRAXANE [Concomitant]
     Active Substance: PACLITAXEL
     Dosage: UNK
     Route: 041
     Dates: start: 20220629, end: 20220705
  6. ABRAXANE [Concomitant]
     Active Substance: PACLITAXEL
     Dosage: UNK
     Route: 041
     Dates: start: 2022, end: 20220810
  7. MAGNESIUM OXIDE [Concomitant]
     Active Substance: MAGNESIUM OXIDE
     Dosage: UNK
     Route: 065
  8. FYCOMPA [Concomitant]
     Active Substance: PERAMPANEL
     Indication: Epilepsy
     Dosage: UNK
     Route: 065
     Dates: end: 202210

REACTIONS (6)
  - Pseudoaldosteronism [Recovered/Resolved]
  - Encephalitis autoimmune [Recovering/Resolving]
  - Rash maculo-papular [Recovering/Resolving]
  - Neutrophil count decreased [Not Recovered/Not Resolved]
  - Hyponatraemia [Unknown]
  - Muscular weakness [Unknown]

NARRATIVE: CASE EVENT DATE: 20220101
